FAERS Safety Report 6701925-4 (Version None)
Quarter: 2010Q2

REPORT INFORMATION
  Report Type: 
  Country: None (occurrence: None)
  Receive Date: 20100427
  Receipt Date: 20100325
  Transmission Date: 20101027
  Serious: Yes (Hospitalization)
  Sender: FDA-Public Use
  Company Number: 2007US002699

PATIENT
  Age: 11 Year
  Sex: Male
  Weight: 72 kg

DRUGS (2)
  1. TACROLIMUS [Suspect]
     Indication: DERMATITIS ATOPIC
     Dosage: 0.1 %, BID, TOPICAL
     Route: 061
     Dates: start: 20060725
  2. PIMECROLIMUS (PIMECROLIMUS, PIMECROLIMUS) [Concomitant]

REACTIONS (1)
  - COMPLICATED MIGRAINE [None]
